FAERS Safety Report 9490354 (Version 2)
Quarter: 2014Q3

REPORT INFORMATION
  Report Type: Spontaneous
  Country: US (occurrence: US)
  Receive Date: 20130830
  Receipt Date: 20140918
  Transmission Date: 20150326
  Serious: Yes (Other)
  Sender: FDA-Public Use
  Company Number: US-009507513-1308USA013307

PATIENT
  Sex: Female

DRUGS (5)
  1. VICTRELIS [Suspect]
     Active Substance: BOCEPREVIR
     Indication: HEPATITIS C
     Dosage: UNK
     Route: 048
     Dates: start: 20130719
  2. REBETOL [Suspect]
     Active Substance: RIBAVIRIN
     Dosage: 1000 MG DAILY
     Route: 048
     Dates: start: 20130614, end: 2013
  3. REBETOL [Suspect]
     Active Substance: RIBAVIRIN
     Dosage: 600 MG DAILY
     Route: 048
     Dates: start: 2013
  4. PEGINTRON [Suspect]
     Active Substance: PEGINTERFERON ALFA-2B
     Indication: HEPATITIS C
     Dosage: UNK, VIAL
     Dates: start: 20130614, end: 20130816
  5. PEGINTRON [Suspect]
     Active Substance: PEGINTERFERON ALFA-2B
     Dosage: UNK, REDIPEN
     Dates: start: 20130817

REACTIONS (7)
  - Fluid retention [Unknown]
  - Platelet count decreased [Unknown]
  - Injection site bruising [Unknown]
  - Fatigue [Unknown]
  - Blood potassium decreased [Unknown]
  - Muscle spasms [Unknown]
  - Red blood cell count decreased [Unknown]

NARRATIVE: CASE EVENT DATE: 2013
